FAERS Safety Report 7156083-1 (Version None)
Quarter: 2010Q4

REPORT INFORMATION
  Report Type: 
  Country: None (occurrence: None)
  Receive Date: 20101214
  Receipt Date: 20101201
  Transmission Date: 20110411
  Serious: No
  Sender: FDA-Public Use
  Company Number: US-B.I. PHARMACEUTICALS,INC./RIDGEFIELD-2010-BP-13712BP

PATIENT
  Age: 80 Year
  Sex: Male

DRUGS (2)
  1. ZANTAC 150 [Suspect]
     Indication: DYSPEPSIA
     Route: 048
     Dates: start: 20050101, end: 20101001
  2. ZANTAC 150 [Suspect]
     Dosage: 75 MG
     Route: 048
     Dates: start: 20101001

REACTIONS (2)
  - ABDOMINAL DISTENSION [None]
  - FLATULENCE [None]
